FAERS Safety Report 7290351-8 (Version None)
Quarter: 2011Q1

REPORT INFORMATION
  Report Type: 
  Country: None (occurrence: None)
  Receive Date: 20110214
  Receipt Date: 20110204
  Transmission Date: 20110831
  Serious: Yes (Other)
  Sender: FDA-Public Use
  Company Number: ES-AMGEN-ESPSP2011006763

PATIENT

DRUGS (1)
  1. ARANESP [Suspect]
     Indication: HAEMOGLOBIN DECREASED

REACTIONS (1)
  - APLASIA PURE RED CELL [None]
